FAERS Safety Report 24119670 (Version 2)
Quarter: 2024Q3

REPORT INFORMATION
  Report Type: Report from Study
  Country: US (occurrence: US)
  Receive Date: 20240722
  Receipt Date: 20240927
  Transmission Date: 20241016
  Serious: Yes (Hospitalization, Other)
  Sender: ABBVIE
  Company Number: US-ABBVIE-5839934

PATIENT
  Sex: Male

DRUGS (1)
  1. RINVOQ [Suspect]
     Active Substance: UPADACITINIB
     Indication: Product used for unknown indication
     Route: 048
     Dates: start: 2023, end: 202407

REACTIONS (7)
  - Road traffic accident [Not Recovered/Not Resolved]
  - Pruritus [Not Recovered/Not Resolved]
  - Infection [Not Recovered/Not Resolved]
  - Pneumothorax [Unknown]
  - Colectomy [Not Recovered/Not Resolved]
  - Tracheal injury [Unknown]
  - Serology abnormal [Unknown]

NARRATIVE: CASE EVENT DATE: 20240101
